FAERS Safety Report 9753538 (Version 3)
Quarter: 2014Q2

REPORT INFORMATION
  Report Type: Spontaneous
  Country: US (occurrence: None)
  Receive Date: 20131211
  Receipt Date: 20140528
  Transmission Date: 20141212
  Serious: Yes (Other)
  Sender: FDA-Public Use
  Company Number: AUR-APL-2013-10391

PATIENT
  Age: 78 Year
  Sex: Male

DRUGS (2)
  1. CLOPIDOGREL [Suspect]
     Indication: CORONARY ARTERY DISEASE
  2. ASPIRIN (ACETYLSALICYLIC ACID) [Concomitant]

REACTIONS (5)
  - Sweat gland tumour [None]
  - Haemorrhage [None]
  - Pigmentation disorder [None]
  - Sweat gland tumour [None]
  - Haemorrhagic cyst [None]
